FAERS Safety Report 18043607 (Version 11)
Quarter: 2020Q4

REPORT INFORMATION
  Report Type: Report from Study
  Country: SE (occurrence: SE)
  Receive Date: 20200720
  Receipt Date: 20201209
  Transmission Date: 20210113
  Serious: Yes (Hospitalization)
  Sender: FDA-Public Use
  Company Number: SE-ROCHE-2544113

PATIENT
  Age: 65 Year
  Sex: Female
  Weight: 50.3 kg

DRUGS (14)
  1. ATEZOLIZUMAB. [Suspect]
     Active Substance: ATEZOLIZUMAB
     Indication: NON-SMALL CELL LUNG CANCER
     Dosage: DATE OF MOST RECENT DOSE OF OPEN LABEL ATEZOLIZUMAB, 1200 MG PRIOR TO AE ONSET: 07/JUL/2020.
     Route: 042
     Dates: start: 20200525
  2. OMEPRAZOLE. [Concomitant]
     Active Substance: OMEPRAZOLE
     Indication: GASTRITIS
     Route: 048
  3. TRELEGY ELLIPTA [Concomitant]
     Active Substance: FLUTICASONE FUROATE\UMECLIDINIUM BROMIDE\VILANTEROL TRIFENATATE
     Indication: CHRONIC OBSTRUCTIVE PULMONARY DISEASE
     Route: 055
  4. NASONEX [Concomitant]
     Active Substance: MOMETASONE FUROATE
     Indication: RHINITIS
     Route: 045
  5. ITRACONAZOLE. [Concomitant]
     Active Substance: ITRACONAZOLE
     Indication: STOMATITIS
     Dates: start: 20200102, end: 20200116
  6. ITRACONAZOLE. [Concomitant]
     Active Substance: ITRACONAZOLE
     Route: 048
     Dates: start: 20200121, end: 20200209
  7. PEMETREXED. [Suspect]
     Active Substance: PEMETREXED
     Indication: NON-SMALL CELL LUNG CANCER
     Dosage: 500 MG/M^2 WILL BE ADMINISTERED INTRAVENOUSLY ON DAY 1 OF EACH 21-DAY CYCLE FOR 4 CYCLES?MOST RECEN
     Route: 042
     Dates: start: 20191206
  8. CILAXORAL [Concomitant]
     Active Substance: SODIUM PICOSULFATE
     Indication: CONSTIPATION
     Route: 048
     Dates: start: 20191210
  9. LEVAXIN [Concomitant]
     Active Substance: LEVOTHYROXINE SODIUM
     Indication: HYPOTHYROIDISM
     Route: 048
  10. ATEZOLIZUMAB. [Suspect]
     Active Substance: ATEZOLIZUMAB
     Indication: NON-SMALL CELL LUNG CANCER
     Dosage: MOST RECENT DOSE OF ATEZOLIZUMAB PRIOR TO AE ONSET: 21/JAN/2020?MOST RECENT DOSE OF ATEZOLIZUMAB PRI
     Route: 042
     Dates: start: 20191206
  11. ALVEDON [Concomitant]
     Active Substance: ACETAMINOPHEN
     Indication: PAIN
     Route: 048
  12. CARBOPLATIN. [Suspect]
     Active Substance: CARBOPLATIN
     Indication: NON-SMALL CELL LUNG CANCER
     Dosage: INITIAL TARGET AUC OF 6 MG/ML/MIN WILL BE ADMINISTERED INTRAVENOUSLY ON DAY 1 OF EACH 21-DAY CYCLE F
     Route: 042
     Dates: start: 20191206
  13. INNOHEP [Concomitant]
     Active Substance: TINZAPARIN SODIUM
     Route: 058
  14. ONDANSETRON [Concomitant]
     Active Substance: ONDANSETRON
     Indication: NAUSEA
     Route: 048
     Dates: start: 20191206

REACTIONS (3)
  - Urinary tract infection [Recovered/Resolved]
  - Pain [Recovered/Resolved]
  - Pyrexia [Recovered/Resolved]

NARRATIVE: CASE EVENT DATE: 20200202
